FAERS Safety Report 15462875 (Version 1)
Quarter: 2018Q4

REPORT INFORMATION
  Report Type: Spontaneous
  Country: US (occurrence: US)
  Receive Date: 20181004
  Receipt Date: 20181004
  Transmission Date: 20190204
  Serious: Yes (Hospitalization)
  Sender: FDA-Public Use
  Company Number: US-REGULIS-2055667

PATIENT
  Age: 83 Year
  Sex: Male
  Weight: 75 kg

DRUGS (5)
  1. NOREPINEPHRINE. [Concomitant]
     Active Substance: NOREPINEPHRINE
  2. VASOPRESSIN. [Concomitant]
     Active Substance: VASOPRESSIN
  3. METHYLENE BLUE. [Suspect]
     Active Substance: METHYLENE BLUE
     Indication: HYPOTENSION
  4. EPINEPHRINE. [Concomitant]
     Active Substance: EPINEPHRINE
  5. HYDROXYCOBALAMIN [Suspect]
     Active Substance: HYDROXOCOBALAMIN
     Route: 042

REACTIONS (2)
  - Off label use [None]
  - Acute kidney injury [Unknown]
